FAERS Safety Report 5975867-6 (Version None)
Quarter: 2008Q4

REPORT INFORMATION
  Report Type: 
  Country: None (occurrence: None)
  Receive Date: 20081202
  Receipt Date: 20081127
  Transmission Date: 20090506
  Serious: Yes (Death, Hospitalization)
  Sender: FDA-Public Use
  Company Number: B0543398A

PATIENT
  Age: 70 Year
  Sex: Male
  Weight: 60 kg

DRUGS (8)
  1. VALTREX [Suspect]
     Indication: HERPES ZOSTER
     Dosage: 1000MG THREE TIMES PER DAY
     Route: 048
     Dates: start: 20081017, end: 20081017
  2. VALTREX [Suspect]
     Dosage: 500MG THREE TIMES PER DAY
     Route: 048
     Dates: start: 20081018, end: 20081020
  3. ZYLORIC [Concomitant]
     Dosage: 100MG PER DAY
     Route: 048
  4. PREDONINE [Concomitant]
     Indication: INTERSTITIAL LUNG DISEASE
     Dosage: 5MG PER DAY
     Route: 065
  5. ASPIRIN [Concomitant]
     Dosage: 100MG PER DAY
     Route: 048
  6. WARFARIN SODIUM [Concomitant]
     Dosage: 1MG PER DAY
     Route: 048
  7. HERBESSER R [Concomitant]
     Indication: BLOOD PHOSPHORUS INCREASED
     Dosage: 100MG PER DAY
     Route: 048
  8. LENDORMIN [Concomitant]
     Indication: INSOMNIA
     Dosage: .25MG PER DAY
     Route: 048

REACTIONS (13)
  - ABASIA [None]
  - AFFECT LABILITY [None]
  - ALTERED STATE OF CONSCIOUSNESS [None]
  - DECREASED APPETITE [None]
  - DYSKINESIA [None]
  - DYSLALIA [None]
  - DYSSTASIA [None]
  - ENCEPHALOPATHY [None]
  - FALL [None]
  - INCOHERENT [None]
  - OVERDOSE [None]
  - PNEUMOTHORAX [None]
  - RESTLESSNESS [None]
